FAERS Safety Report 9228168 (Version 2)
Quarter: 2015Q3

REPORT INFORMATION
  Report Type: Report from Study
  Country: MX (occurrence: MX)
  Receive Date: 20130412
  Receipt Date: 20150702
  Transmission Date: 20151125
  Serious: Yes (Death)
  Sender: FDA-Public Use
  Company Number: PHHY2013MX035411

PATIENT
  Age: 79 Year
  Sex: Male

DRUGS (3)
  1. DIOVAN [Suspect]
     Active Substance: VALSARTAN
     Indication: BLOOD PRESSURE ABNORMAL
     Dosage: 1 DF, DAILY
     Route: 065
  2. SEKRETOVIT [Concomitant]
     Indication: EMPHYSEMA
     Dosage: 1 DF, DAILY
     Dates: start: 201012
  3. ONBREZ [Suspect]
     Active Substance: INDACATEROL
     Indication: EMPHYSEMA
     Dosage: 300 UG, QD
     Route: 055
     Dates: start: 201012, end: 20130316

REACTIONS (2)
  - Respiratory arrest [Fatal]
  - Concomitant disease progression [Fatal]

NARRATIVE: CASE EVENT DATE: 20130317
